FAERS Safety Report 6412502-7 (Version None)
Quarter: 2009Q4

REPORT INFORMATION
  Report Type: 
  Country: None (occurrence: None)
  Receive Date: 20091023
  Receipt Date: 20090220
  Transmission Date: 20100525
  Serious: No
  Sender: FDA-Public Use
  Company Number: US-BRISTOL-MYERS SQUIBB COMPANY-14479802

PATIENT
  Age: 73 Year
  Sex: Female
  Weight: 79 kg

DRUGS (2)
  1. KENALOG-40 [Suspect]
     Indication: ARTHRITIS
     Dosage: 1DF=3 EPIDURAL INJECTIONS
     Dates: start: 20080801
  2. SYNTHROID [Concomitant]

REACTIONS (9)
  - ALOPECIA [None]
  - ANXIETY [None]
  - BLOOD URINE PRESENT [None]
  - DECREASED APPETITE [None]
  - DEPRESSION [None]
  - DYSURIA [None]
  - PANIC REACTION [None]
  - SKIN DISCOLOURATION [None]
  - WEIGHT DECREASED [None]
